FAERS Safety Report 5566469-4 (Version None)
Quarter: 2007Q4

REPORT INFORMATION
  Report Type: 
  Country: None (occurrence: None)
  Receive Date: 20071219
  Receipt Date: 20071217
  Transmission Date: 20080405
  Serious: Yes (Other)
  Sender: FDA-Public Use
  Company Number: US-GENENTECH-252101

PATIENT
  Sex: Female

DRUGS (1)
  1. RAPTIVA [Suspect]
     Indication: PSORIASIS
     Dosage: 0.7 ML, 1/WEEK
     Route: 058
     Dates: start: 20060601, end: 20071129

REACTIONS (3)
  - HEMIPLEGIA [None]
  - MOTOR DYSFUNCTION [None]
  - SENSORY DISTURBANCE [None]
